FAERS Safety Report 7240212-5 (Version None)
Quarter: 2011Q1

REPORT INFORMATION
  Report Type: 
  Country: None (occurrence: None)
  Receive Date: 20110124
  Receipt Date: 20110119
  Transmission Date: 20110831
  Serious: Yes (Death)
  Sender: FDA-Public Use
  Company Number: US-JNJFOC-20110105515

PATIENT
  Sex: Female

DRUGS (1)
  1. DURAGESIC-50 [Suspect]
     Indication: ILL-DEFINED DISORDER
     Route: 065

REACTIONS (2)
  - DEATH [None]
  - DRUG LEVEL INCREASED [None]
